FAERS Safety Report 12315821 (Version 4)
Quarter: 2017Q3

REPORT INFORMATION
  Report Type: Spontaneous
  Country: US (occurrence: US)
  Receive Date: 20160428
  Receipt Date: 20170906
  Transmission Date: 20171127
  Serious: Yes (Hospitalization)
  Sender: FDA-Public Use
  Company Number: US-DSJP-DSU-2016-114698

PATIENT

DRUGS (1)
  1. BENICAR [Suspect]
     Active Substance: OLMESARTAN MEDOXOMIL
     Indication: BLOOD PRESSURE MEASUREMENT
     Dosage: 40 MG, QD
     Dates: start: 2013, end: 2015

REACTIONS (12)
  - Type 2 diabetes mellitus [Unknown]
  - Osteoarthritis [Unknown]
  - Dizziness [Unknown]
  - Malabsorption [Unknown]
  - Bladder cancer [Unknown]
  - Hyperlipidaemia [Unknown]
  - Hypertension [Unknown]
  - Seizure [Unknown]
  - Pain [Unknown]
  - Hepatitis B surface antibody [Unknown]
  - Chronic kidney disease [Unknown]
  - Transient ischaemic attack [Unknown]

NARRATIVE: CASE EVENT DATE: 2015
